FAERS Safety Report 7497028-4 (Version None)
Quarter: 2011Q2

REPORT INFORMATION
  Report Type: 
  Country: None (occurrence: None)
  Receive Date: 20110523
  Receipt Date: 20110517
  Transmission Date: 20111010
  Serious: Yes (Hospitalization)
  Sender: FDA-Public Use
  Company Number: US-GILEAD-2011-0038617

PATIENT
  Sex: Female

DRUGS (4)
  1. LETAIRIS [Suspect]
     Indication: ANGINA PECTORIS
  2. LETAIRIS [Suspect]
     Indication: AORTIC VALVE DISEASE
  3. LETAIRIS [Suspect]
     Indication: PULMONARY HYPERTENSION
     Route: 048
     Dates: start: 20110125
  4. LETAIRIS [Suspect]
     Indication: AORTIC STENOSIS

REACTIONS (1)
  - GASTRIC DISORDER [None]
